FAERS Safety Report 21600161 (Version 2)
Quarter: 2023Q1

REPORT INFORMATION
  Report Type: Spontaneous
  Country: US (occurrence: US)
  Receive Date: 20221116
  Receipt Date: 20230104
  Transmission Date: 20230418
  Serious: Yes (Death, Hospitalization, Other)
  Sender: FDA-Public Use
  Company Number: US-BRISTOL-MYERS SQUIBB COMPANY-2022-137040

PATIENT
  Age: 71 Year
  Sex: Female

DRUGS (18)
  1. SPRYCEL [Suspect]
     Active Substance: DASATINIB
     Indication: Acute lymphocytic leukaemia
     Route: 048
     Dates: start: 20220727
  2. SPRYCEL [Suspect]
     Active Substance: DASATINIB
     Indication: Philadelphia positive acute lymphocytic leukaemia
     Route: 048
     Dates: start: 202208
  3. SPRYCEL [Suspect]
     Active Substance: DASATINIB
     Route: 048
     Dates: end: 20221024
  4. NILOTINIB [Suspect]
     Active Substance: NILOTINIB
     Indication: Product used for unknown indication
     Dates: start: 20221029
  5. ZOVIRAX [Concomitant]
     Active Substance: ACYCLOVIR
     Indication: Product used for unknown indication
     Dosage: FOR  37 DAYS
     Route: 048
  6. ZYLOPRIM [Concomitant]
     Active Substance: ALLOPURINOL
     Indication: Product used for unknown indication
     Route: 048
  7. KEFLEX [Concomitant]
     Active Substance: CEPHALEXIN
     Indication: Product used for unknown indication
     Route: 048
  8. PEPCID [Concomitant]
     Active Substance: FAMOTIDINE
     Indication: Product used for unknown indication
     Route: 048
  9. LEVAQUIN [Concomitant]
     Active Substance: LEVOFLOXACIN
     Indication: Product used for unknown indication
     Dosage: FOR 12 DOSES
     Route: 048
  10. SODIUM BICARBONATE [Concomitant]
     Active Substance: SODIUM BICARBONATE
     Indication: Product used for unknown indication
     Route: 048
  11. CHOLECALCIFEROL [Concomitant]
     Active Substance: CHOLECALCIFEROL
     Indication: Dyslipidaemia
     Dosage: 1000 UNIT
     Route: 048
  12. ESTRADIOL [ESTRADIOL CIPIONATE] [Concomitant]
     Indication: Menopausal symptoms
     Route: 048
  13. ZOFRAN [Concomitant]
     Active Substance: ONDANSETRON HYDROCHLORIDE
     Indication: Product used for unknown indication
  14. DECADRON [Concomitant]
     Active Substance: DEXAMETHASONE
     Indication: Product used for unknown indication
     Dosage: 12 MG IN SODIUM CHLORIDE 0.9% 100 ML IVPB 8 MG, 1 OF 26 CYCLES
     Route: 042
  15. LEUCOVORIN [Concomitant]
     Active Substance: LEUCOVORIN
     Indication: Product used for unknown indication
     Dosage: IVPB
     Route: 042
  16. VITAMINS [Concomitant]
     Active Substance: VITAMINS
     Indication: Product used for unknown indication
     Route: 048
  17. ALBUTEROL [Concomitant]
     Active Substance: ALBUTEROL
     Indication: Product used for unknown indication
     Dosage: EVERY 4 HRS PRN
  18. ATIVAN [Concomitant]
     Active Substance: LORAZEPAM
     Indication: Product used for unknown indication
     Dosage: PRN
     Route: 048

REACTIONS (18)
  - Pneumonitis [Fatal]
  - Acute respiratory failure [Fatal]
  - Epistaxis [Recovered/Resolved]
  - Sepsis [Unknown]
  - Pneumonia bacterial [Unknown]
  - Pulmonary oedema [Recovering/Resolving]
  - Hypokalaemia [Unknown]
  - pH urine increased [Unknown]
  - Pulmonary hypertension [Unknown]
  - Thrombocytosis [Unknown]
  - Condition aggravated [Unknown]
  - Systemic inflammatory response syndrome [Recovered/Resolved]
  - Anaemia macrocytic [Unknown]
  - Febrile neutropenia [Unknown]
  - Chronic kidney disease [Unknown]
  - Diffuse large B-cell lymphoma [Unknown]
  - Bronchiectasis [Unknown]
  - Acute respiratory distress syndrome [Unknown]

NARRATIVE: CASE EVENT DATE: 20220901
